FAERS Safety Report 9242465 (Version 7)
Quarter: 2014Q2

REPORT INFORMATION
  Report Type: Report from Study
  Country: GB (occurrence: GB)
  Receive Date: 20130419
  Receipt Date: 20140404
  Transmission Date: 20141212
  Serious: Yes (Hospitalization)
  Sender: FDA-Public Use
  Company Number: GB-ROCHE-1215354

PATIENT
  Age: 73 Year
  Sex: Male

DRUGS (2)
  1. RANIBIZUMAB [Suspect]
     Indication: AGE-RELATED MACULAR DEGENERATION
     Dosage: 0.5M/0.05 ML
     Route: 050
     Dates: start: 20120515
  2. RANIBIZUMAB [Suspect]
     Route: 050
     Dates: start: 20130109

REACTIONS (7)
  - Cholangitis acute [Recovered/Resolved with Sequelae]
  - Adenocarcinoma pancreas [Not Recovered/Not Resolved]
  - Type 2 diabetes mellitus [Not Recovered/Not Resolved]
  - Adenocarcinoma [Not Recovered/Not Resolved]
  - Bile duct stenosis [Not Recovered/Not Resolved]
  - Atrial fibrillation [Recovered/Resolved]
  - Cholelithiasis [Not Recovered/Not Resolved]
